FAERS Safety Report 5033367-4 (Version None)
Quarter: 2006Q2

REPORT INFORMATION
  Report Type: 
  Country: None (occurrence: None)
  Receive Date: 20060620
  Receipt Date: 20060607
  Transmission Date: 20061013
  Serious: Yes (Life-Threatening)
  Sender: FDA-Public Use
  Company Number: 2006069663

PATIENT
  Age: 82 Year
  Sex: Female
  Weight: 33 kg

DRUGS (6)
  1. IRINOTECAN HCL [Suspect]
     Indication: OVARIAN CANCER
     Dosage: SEE IMAGE
     Route: 042
     Dates: start: 20020406, end: 20060413
  2. IRINOTECAN HCL [Suspect]
     Indication: OVARIAN CANCER
     Dosage: SEE IMAGE
     Route: 042
     Dates: start: 20060420, end: 20060420
  3. LANSOPRAZOLE [Concomitant]
  4. JUZENTAIHOTO (HERBAL EXTRACTS NOS) [Concomitant]
  5. ALLOID (SODIUM ALGINATE) [Concomitant]
  6. FLUCALIN (ASCORBIC ACID, CALCIUM GLUCEPTATE, CALCIUM GLUCONATE) [Concomitant]

REACTIONS (3)
  - INTERSTITIAL LUNG DISEASE [None]
  - LEUKOPENIA [None]
  - MALIGNANT NEOPLASM PROGRESSION [None]
